FAERS Safety Report 6895547-2 (Version None)
Quarter: 2010Q3

REPORT INFORMATION
  Report Type: 
  Country: None (occurrence: None)
  Receive Date: 20100802
  Receipt Date: 20100727
  Transmission Date: 20110219
  Serious: Yes (Life-Threatening, Hospitalization)
  Sender: FDA-Public Use
  Company Number: PHHY2010DK24790

PATIENT
  Sex: Male

DRUGS (4)
  1. DIOVAN [Suspect]
     Dosage: 80 MILLIGRAM(S)
     Route: 048
     Dates: end: 20100410
  2. RASILEZ [Interacting]
     Dosage: 300 MILLIGRAM(S)
     Route: 048
     Dates: end: 20100410
  3. CENTYL MED KALIUMKLORID [Interacting]
     Indication: HYPERTENSION
     Route: 048
     Dates: end: 20100410
  4. APYDAN [Concomitant]
     Indication: EPILEPSY
     Route: 048

REACTIONS (15)
  - ATRIOVENTRICULAR BLOCK COMPLETE [None]
  - BLOOD CREATINE INCREASED [None]
  - BLOOD UREA INCREASED [None]
  - BRADYCARDIA [None]
  - CARDIAC PACEMAKER INSERTION [None]
  - DEHYDRATION [None]
  - DIARRHOEA [None]
  - DIZZINESS [None]
  - DRUG INTERACTION [None]
  - ELECTROLYTE IMBALANCE [None]
  - HYPOTENSION [None]
  - METABOLIC ACIDOSIS [None]
  - NAUSEA [None]
  - RENAL IMPAIRMENT [None]
  - VOMITING [None]
